FAERS Safety Report 5734890-7 (Version None)
Quarter: 2008Q2

REPORT INFORMATION
  Report Type: 
  Country: None (occurrence: None)
  Receive Date: 20080512
  Receipt Date: 20080509
  Transmission Date: 20081010
  Serious: Yes (Hospitalization)
  Sender: FDA-Public Use
  Company Number: B0517818A

PATIENT
  Age: 81 Year
  Sex: Male
  Weight: 67 kg

DRUGS (1)
  1. ZOVIRAX [Suspect]
     Indication: DRUG USE FOR UNKNOWN INDICATION
     Route: 042
     Dates: start: 20080414

REACTIONS (2)
  - ALTERED STATE OF CONSCIOUSNESS [None]
  - ENCEPHALITIS HERPES [None]
